FAERS Safety Report 5144200-4 (Version None)
Quarter: 2006Q4

REPORT INFORMATION
  Report Type: 
  Country: None (occurrence: None)
  Receive Date: 20061106
  Receipt Date: 20061031
  Transmission Date: 20070319
  Serious: Yes (Other)
  Sender: FDA-Public Use
  Company Number: PHHO2006AU17936

PATIENT
  Age: 65 Year
  Sex: Male
  Weight: 89 kg

DRUGS (9)
  1. CYCLOPHOSPHAMIDE [Suspect]
     Indication: BLAST CRISIS IN MYELOGENOUS LEUKAEMIA
     Dosage: 300 MG/M2 EVERY 12 HOURS X 6 DOSES D1-3
     Route: 042
  2. MESNA [Suspect]
     Indication: BLAST CRISIS IN MYELOGENOUS LEUKAEMIA
     Dosage: 600 MG/M2/DAY D1-3
     Route: 042
  3. VINCRISTINE [Suspect]
     Dosage: 2 MG TOTAL DOSE D4 AND 11
     Route: 042
  4. DOXORUBICIN HCL [Suspect]
     Indication: BLAST CRISIS IN MYELOGENOUS LEUKAEMIA
     Dosage: 50 MG/M2 DAY 4
     Route: 042
  5. DEXAMETHASONE TAB [Suspect]
     Indication: BLAST CRISIS IN MYELOGENOUS LEUKAEMIA
     Dosage: 40 MG/DAY D1-4 AND D11-14
  6. METHOTREXATE [Suspect]
     Indication: BLAST CRISIS IN MYELOGENOUS LEUKAEMIA
     Dosage: 12 MG DAY 2 OF C1-3
     Route: 037
  7. CYTARABINE [Suspect]
     Indication: BLAST CRISIS IN MYELOGENOUS LEUKAEMIA
     Dosage: 3 G/M2 EVERY 12 HOURS X 4 DOSES
     Route: 042
  8. G-CSF [Suspect]
     Indication: BLAST CRISIS IN MYELOGENOUS LEUKAEMIA
     Dosage: 5 UG/KG/DAY ALL COURSES
     Route: 058
  9. CGP 57148B [Suspect]
     Indication: BLAST CRISIS IN MYELOGENOUS LEUKAEMIA
     Dosage: 600 MG, QD
     Route: 048
     Dates: start: 20060930

REACTIONS (6)
  - ABDOMINAL PAIN [None]
  - ABDOMINAL RIGIDITY [None]
  - BLOOD AMYLASE INCREASED [None]
  - CHOLELITHIASIS [None]
  - LIPASE INCREASED [None]
  - PANCREATITIS ACUTE [None]
